FAERS Safety Report 26176925 (Version 1)
Quarter: 2025Q4

REPORT INFORMATION
  Report Type: Spontaneous
  Country: EU (occurrence: EU)
  Receive Date: 20251218
  Receipt Date: 20251218
  Transmission Date: 20260118
  Serious: Yes (Life-Threatening)
  Sender: JOHNSON AND JOHNSON
  Company Number: None

PATIENT
  Age: 19 Year
  Sex: Male

DRUGS (2)
  1. PALIPERIDONE [Suspect]
     Active Substance: PALIPERIDONE
     Indication: Psychotic symptom
     Dosage: 1X DAAGS 1 TABLET
     Route: 048
     Dates: start: 20251128, end: 20251129
  2. LORAZEPAM [Concomitant]
     Active Substance: LORAZEPAM
     Indication: Product used for unknown indication
     Dosage: TABLET, 2,5 MG (MILLIGRAM)
     Route: 048

REACTIONS (2)
  - Dystonia [Recovered/Resolved]
  - Dyspnoea [Recovered/Resolved]
